FAERS Safety Report 12750254 (Version 3)
Quarter: 2017Q3

REPORT INFORMATION
  Report Type: Report from Study
  Country: US (occurrence: US)
  Receive Date: 20160915
  Receipt Date: 20170906
  Transmission Date: 20171127
  Serious: Yes (Hospitalization)
  Sender: FDA-Public Use
  Company Number: PHHY2014US181583

PATIENT
  Age: 67 Year
  Sex: Male
  Weight: 102.3 kg

DRUGS (2)
  1. VOTRIENT [Suspect]
     Active Substance: PAZOPANIB HYDROCHLORIDE
     Dosage: 600 MG, QD
     Route: 048
     Dates: start: 201311, end: 20140228
  2. VOTRIENT [Suspect]
     Active Substance: PAZOPANIB HYDROCHLORIDE
     Indication: RENAL CELL CARCINOMA
     Dosage: 800 MG, QID
     Route: 048
     Dates: start: 20130703, end: 201311

REACTIONS (4)
  - Abdominal sepsis [Recovering/Resolving]
  - Intestinal perforation [Recovering/Resolving]
  - Abdominal pain [Unknown]
  - Enterocutaneous fistula [Recovering/Resolving]

NARRATIVE: CASE EVENT DATE: 20140221
